FAERS Safety Report 6671854-3 (Version None)
Quarter: 2010Q2

REPORT INFORMATION
  Report Type: 
  Country: None (occurrence: None)
  Receive Date: 20100407
  Receipt Date: 20100401
  Transmission Date: 20101027
  Serious: Yes (Hospitalization)
  Sender: FDA-Public Use
  Company Number: US-GILEAD-2010-0028269

PATIENT
  Sex: Female
  Weight: 47.443 kg

DRUGS (10)
  1. LETAIRIS [Suspect]
     Indication: PULMONARY ARTERIAL HYPERTENSION
     Route: 048
     Dates: start: 20090707
  2. LASIX [Concomitant]
  3. COUMADIN [Concomitant]
  4. TOPROL-XL [Concomitant]
  5. DIOVAN [Concomitant]
  6. SYNTHROID [Concomitant]
  7. TRAMADOL [Concomitant]
  8. FERROUS SULFATE TAB [Concomitant]
  9. XANAX [Concomitant]
  10. AMBIEN [Concomitant]

REACTIONS (1)
  - CARDIAC FAILURE CONGESTIVE [None]
